FAERS Safety Report 19479506 (Version 1)
Quarter: 2021Q2

REPORT INFORMATION
  Report Type: Spontaneous
  Country: GB (occurrence: GB)
  Receive Date: 20210630
  Receipt Date: 20210630
  Transmission Date: 20210717
  Serious: Yes (Life-Threatening, Other)
  Sender: FDA-Public Use
  Company Number: GB-IGSA-BIG0015088

PATIENT

DRUGS (3)
  1. ASTRAZENECA COVID?19 VACCINE [Suspect]
     Active Substance: AZD-1222
     Dosage: DOSE 2
     Dates: start: 20210530
  2. HUMAN NORMAL IMMUNOGLOBULIN (IV) [Suspect]
     Active Substance: HUMAN IMMUNOGLOBULIN G
     Indication: PRODUCT USED FOR UNKNOWN INDICATION
  3. ASTRAZENECA COVID?19 VACCINE [Suspect]
     Active Substance: AZD-1222
     Dosage: DOSE 1
     Dates: start: 20210306

REACTIONS (6)
  - Chest discomfort [Unknown]
  - Thrombocytosis [Unknown]
  - Thrombosis [Recovering/Resolving]
  - Activated partial thromboplastin time prolonged [Unknown]
  - Neutrophilia [Unknown]
  - Vomiting [Unknown]

NARRATIVE: CASE EVENT DATE: 20210611
